FAERS Safety Report 8868174 (Version 1)
Quarter: 2012Q4

REPORT INFORMATION
  Report Type: 
  Country: US (occurrence: US)
  Receive Date: 20121025
  Receipt Date: 20121025
  Transmission Date: 20130627
  Serious: No
  Sender: FDA-Public Use
  Company Number: US-AMGEN-USASP2012019395

PATIENT
  Age: 72 Year
  Sex: Female
  Weight: 44.44 kg

DRUGS (15)
  1. ENBREL [Suspect]
     Indication: PRODUCT USED FOR UNKNOWN INDICATION
     Dosage: 50 mg, qwk
     Route: 058
  2. ATENOLOL [Concomitant]
     Dosage: 25 mg, UNK
  3. FOLIC ACID [Concomitant]
     Dosage: 1 mg, UNK
  4. ISOSORB MONO [Concomitant]
     Dosage: 60 mg, UNK
  5. PLAVIX [Concomitant]
     Dosage: 75 mg, UNK
  6. VITAMIN B 12 [Concomitant]
  7. METHYLPRED [Concomitant]
     Dosage: 4 mg, UNK
  8. TRAMADOL HCL [Concomitant]
     Dosage: 50 mg, UNK
  9. CARTIA XT [Concomitant]
  10. SIMVASTATIN [Concomitant]
     Dosage: 40 mg, UNK
  11. RANEXA [Concomitant]
     Dosage: 500 mg, UNK
  12. VITAMIN D /00107901/ [Concomitant]
  13. ZOLPIDEM [Concomitant]
     Dosage: 5 mg, UNK
  14. ECOTRIN [Concomitant]
     Dosage: 81 mg, UNK
  15. SYNTHROID [Concomitant]

REACTIONS (1)
  - Increased tendency to bruise [Unknown]
